FAERS Safety Report 7365473-3 (Version None)
Quarter: 2011Q1

REPORT INFORMATION
  Report Type: 
  Country: None (occurrence: None)
  Receive Date: 20110316
  Receipt Date: 20110316
  Transmission Date: 20110831
  Serious: No
  Sender: FDA-Public Use
  Company Number: None

PATIENT
  Sex: Female
  Weight: 46.7205 kg

DRUGS (2)
  1. AMITIZA [Suspect]
     Indication: CONSTIPATION
     Dosage: 24 MCG 1 TWICE DAY WITH FOOD
     Dates: start: 20110220
  2. AMITIZA [Suspect]
     Indication: CONSTIPATION
     Dosage: 24 MCG 1 TWICE DAY WITH FOOD
     Dates: start: 20110221

REACTIONS (8)
  - DIARRHOEA [None]
  - ASTHENIA [None]
  - NAUSEA [None]
  - HEADACHE [None]
  - HEART RATE INCREASED [None]
  - FEELING OF BODY TEMPERATURE CHANGE [None]
  - FEELING ABNORMAL [None]
  - PARAESTHESIA [None]
